FAERS Safety Report 15456019 (Version 2)
Quarter: 2018Q4

REPORT INFORMATION
  Report Type: Report from Study
  Country: US (occurrence: US)
  Receive Date: 20181002
  Receipt Date: 20181102
  Transmission Date: 20190204
  Serious: Yes (Death, Hospitalization)
  Sender: FDA-Public Use
  Company Number: US-EISAI MEDICAL RESEARCH-EC-2018-039791

PATIENT
  Age: 43 Year
  Sex: Male

DRUGS (19)
  1. PROTONIX [Concomitant]
     Active Substance: PANTOPRAZOLE SODIUM
  2. OXYCODONE [Concomitant]
     Active Substance: OXYCODONE
  3. SULFASALAZINE. [Concomitant]
     Active Substance: SULFASALAZINE
  4. LENVIMA [Suspect]
     Active Substance: LENVATINIB
     Indication: RENAL CANCER
     Route: 048
     Dates: start: 2018, end: 201805
  5. AFINITOR [Concomitant]
     Active Substance: EVEROLIMUS
  6. LENVIMA [Suspect]
     Active Substance: LENVATINIB
     Route: 048
     Dates: start: 201805, end: 201808
  7. LENVIMA [Suspect]
     Active Substance: LENVATINIB
     Route: 048
     Dates: start: 201808, end: 201809
  8. HEPARIN [Concomitant]
     Active Substance: HEPARIN SODIUM
  9. COLACE [Concomitant]
     Active Substance: DOCUSATE SODIUM
  10. ELIQUIS [Concomitant]
     Active Substance: APIXABAN
  11. CYMBALTA [Concomitant]
     Active Substance: DULOXETINE HYDROCHLORIDE
  12. MIRALAX [Concomitant]
     Active Substance: POLYETHYLENE GLYCOL 3350
  13. SENNA EXTRA [Concomitant]
  14. LENVIMA [Suspect]
     Active Substance: LENVATINIB
     Dosage: PARTIAL UNKNOWN DOSAGE
     Route: 048
     Dates: start: 201805, end: 201805
  15. LENVIMA [Suspect]
     Active Substance: LENVATINIB
     Route: 048
     Dates: start: 20180919, end: 2018
  16. PREDNISONE. [Concomitant]
     Active Substance: PREDNISONE
  17. LASIX [Concomitant]
     Active Substance: FUROSEMIDE
  18. PANTOPRAZOLE [Concomitant]
     Active Substance: PANTOPRAZOLE
  19. OXYCONTIN [Concomitant]
     Active Substance: OXYCODONE HYDROCHLORIDE

REACTIONS (13)
  - Pulmonary embolism [Unknown]
  - Decubitus ulcer [Not Recovered/Not Resolved]
  - Neuralgia [Not Recovered/Not Resolved]
  - Constipation [Not Recovered/Not Resolved]
  - Paralysis [Not Recovered/Not Resolved]
  - Pleural effusion [Unknown]
  - Abdominal pain upper [Not Recovered/Not Resolved]
  - Dehydration [Unknown]
  - Death [Fatal]
  - Incorrect dose administered [Recovered/Resolved]
  - Wheezing [Unknown]
  - Hypotension [Unknown]
  - Fluid retention [Unknown]

NARRATIVE: CASE EVENT DATE: 2018
